FAERS Safety Report 6135973-2 (Version None)
Quarter: 2009Q1

REPORT INFORMATION
  Report Type: 
  Country: None (occurrence: None)
  Receive Date: 20090329
  Receipt Date: 20080801
  Transmission Date: 20090719
  Serious: No
  Sender: FDA-Public Use
  Company Number: US-BAUSCH-2008BL003396

PATIENT
  Age: 60 Year
  Sex: Female

DRUGS (3)
  1. LOTEMAX [Suspect]
     Indication: KERATOCONJUNCTIVITIS SICCA
     Route: 047
     Dates: start: 20080701, end: 20080701
  2. LOTEMAX [Suspect]
     Route: 047
     Dates: start: 20080701, end: 20080701
  3. FLONASE [Concomitant]

REACTIONS (1)
  - SINUS HEADACHE [None]
